FAERS Safety Report 16038533 (Version 4)
Quarter: 2019Q1

REPORT INFORMATION
  Report Type: Report from Study
  Country: AT (occurrence: AT)
  Receive Date: 20190305
  Receipt Date: 20190328
  Transmission Date: 20190418
  Serious: Yes (Hospitalization, Other)
  Sender: FDA-Public Use
  Company Number: AT-SEATTLE GENETICS-2019SGN00554

PATIENT

DRUGS (13)
  1. BRENTUXIMAB VEDOTIN-MPI [Suspect]
     Active Substance: BRENTUXIMAB VEDOTIN
     Indication: HODGKIN^S DISEASE
     Dosage: 1.8 MILLIGRAM/KILOGRAM
     Route: 065
     Dates: start: 20190211
  2. ETOPOSIDE. [Suspect]
     Active Substance: ETOPOSIDE
     Indication: HODGKIN^S DISEASE
     Dosage: 150 MILLIGRAM/SQ. METER
     Route: 065
     Dates: start: 20190212
  3. VALACYCLOVIR [Suspect]
     Active Substance: VALACYCLOVIR HYDROCHLORIDE
     Indication: NEUTROPENIC INFECTION
     Dosage: UNK
     Route: 065
  4. VANCOMYCIN [Suspect]
     Active Substance: VANCOMYCIN
     Indication: NEUTROPENIC INFECTION
     Dosage: UNK
     Route: 065
  5. EUSAPRIM                           /00086101/ [Concomitant]
     Active Substance: SULFAMETHOXAZOLE\TRIMETHOPRIM
     Dosage: UNK UNK, BID
  6. SAROTEN [Concomitant]
     Active Substance: AMITRIPTYLINE
     Dosage: 25 MILLIGRAM
  7. CYCLOPHOSPHAMIDE. [Suspect]
     Active Substance: CYCLOPHOSPHAMIDE
     Indication: HODGKIN^S DISEASE
     Dosage: 1250 MILLIGRAM/SQ. METER
     Route: 065
     Dates: start: 20190212
  8. DACARBAZINE. [Suspect]
     Active Substance: DACARBAZINE
     Indication: HODGKIN^S DISEASE
     Dosage: UNK
     Route: 065
  9. DEXAMETHASONE. [Suspect]
     Active Substance: DEXAMETHASONE
     Indication: HODGKIN^S DISEASE
     Dosage: 40 MILLIGRAM/KILOGRAM
     Route: 065
     Dates: start: 20190212
  10. ZORNO [Concomitant]
     Dosage: UNK
     Route: 065
     Dates: start: 20190215
  11. DOXORUBICIN [Suspect]
     Active Substance: DOXORUBICIN
     Indication: HODGKIN^S DISEASE
     Dosage: UNK
     Route: 065
  12. PIPERACILLIN AND TAZOBACTAM [Suspect]
     Active Substance: PIPERACILLIN SODIUM\TAZOBACTAM SODIUM
     Indication: NEUTROPENIC INFECTION
     Dosage: UNK
     Route: 065
  13. CIPROFLOXACIN. [Concomitant]
     Active Substance: CIPROFLOXACIN
     Dosage: 500 MILLIGRAM
     Route: 065
     Dates: start: 20190215

REACTIONS (3)
  - Neutropenic infection [Not Recovered/Not Resolved]
  - Leukopenia [Recovered/Resolved]
  - Acute kidney injury [Recovered/Resolved]

NARRATIVE: CASE EVENT DATE: 20190220
